FAERS Safety Report 11852770 (Version 4)
Quarter: 2016Q3

REPORT INFORMATION
  Report Type: Report from Study
  Country: JP (occurrence: JP)
  Receive Date: 20151218
  Receipt Date: 20160726
  Transmission Date: 20161109
  Serious: Yes (Death, Life-Threatening, Hospitalization, Other)
  Sender: FDA-Public Use
  Company Number: JP-INCYTE CORPORATION-2015IN006509

PATIENT
  Age: 16 Year
  Sex: Female
  Weight: 41 kg

DRUGS (54)
  1. ONCOVIN [Suspect]
     Active Substance: VINCRISTINE SULFATE
     Indication: BLAST CELL COUNT INCREASED
  2. PLATELET CONCENTRATE(IRRADIATED) [Concomitant]
     Indication: PRIMARY MYELOFIBROSIS
     Dosage: 10 IU, UNK
     Route: 065
     Dates: start: 20150209, end: 20150209
  3. PLATELET CONCENTRATE(IRRADIATED) [Concomitant]
     Dosage: 10 IU, UNK
     Route: 065
     Dates: start: 20150424, end: 20150424
  4. RED CELLS CONCENTRATES-LEUKOCYTES REDUCED [Concomitant]
     Dosage: 400 ML, UNK
     Route: 065
     Dates: start: 20150227, end: 20150227
  5. RED CELLS CONCENTRATES-LEUKOCYTES REDUCED [Concomitant]
     Dosage: 400, UNK
     Route: 065
     Dates: start: 20150606, end: 20150606
  6. PLATELETS [Concomitant]
     Active Substance: HUMAN PLATELET, ALLOGENIC
     Dosage: 10 IU, UNK
     Route: 065
     Dates: start: 20150518, end: 20150518
  7. PLATELETS [Concomitant]
     Active Substance: HUMAN PLATELET, ALLOGENIC
     Dosage: 10 IU, UNK
     Route: 065
     Dates: start: 20150522, end: 20150522
  8. JAKAFI [Suspect]
     Active Substance: RUXOLITINIB
     Dosage: 50 MG, BID
     Route: 048
     Dates: start: 20150202, end: 20150315
  9. JAKAFI [Suspect]
     Active Substance: RUXOLITINIB
     Dosage: 50 MG, BID
     Route: 048
     Dates: start: 20150321
  10. DECADRON [Suspect]
     Active Substance: DEXAMETHASONE
     Indication: ACUTE LYMPHOCYTIC LEUKAEMIA
     Dosage: 8 MG, UNK
     Route: 048
     Dates: start: 20150316, end: 20150320
  11. DECADRON [Suspect]
     Active Substance: DEXAMETHASONE
     Dosage: 26.4 MG, UNK
     Route: 048
     Dates: start: 20150420, end: 20150428
  12. PLATELET CONCENTRATE(IRRADIATED) [Concomitant]
     Dosage: 10 IU, UNK
     Route: 065
     Dates: start: 20150423, end: 20150423
  13. RED CELLS CONCENTRATES-LEUKOCYTES REDUCED [Concomitant]
     Dosage: 400 UNK
     Route: 065
     Dates: start: 20150602, end: 20150602
  14. PLATELETS [Concomitant]
     Active Substance: HUMAN PLATELET, ALLOGENIC
     Dosage: 10 IU, UNK
     Route: 065
     Dates: start: 20150514, end: 20150514
  15. JAKAFI [Suspect]
     Active Substance: RUXOLITINIB
     Dosage: 40 MG, BID
     Route: 048
     Dates: start: 20150126, end: 20150201
  16. DECADRON [Suspect]
     Active Substance: DEXAMETHASONE
     Dosage: 29.7 MG, UNK
     Route: 048
     Dates: start: 20150603, end: 20150605
  17. BACTRAMIN [Concomitant]
     Active Substance: SULFAMETHOXAZOLE\TRIMETHOPRIM
     Indication: PROPHYLAXIS
     Dosage: 2 G, UNK
     Route: 048
  18. DIFLUCAN [Concomitant]
     Active Substance: FLUCONAZOLE
     Indication: PROPHYLAXIS
     Dosage: 100 MG, UNK
     Route: 048
     Dates: end: 20150421
  19. PLATELET CONCENTRATE(IRRADIATED) [Concomitant]
     Dosage: 10 IU, UNK
     Route: 065
     Dates: start: 20150607, end: 20150607
  20. RED CELLS CONCENTRATES-LEUKOCYTES REDUCED [Concomitant]
     Dosage: 400, UNK
     Route: 065
     Dates: start: 20150413, end: 20150413
  21. PLATELETS [Concomitant]
     Active Substance: HUMAN PLATELET, ALLOGENIC
     Dosage: 10 IU, UNK
     Route: 065
     Dates: start: 20150526, end: 20150526
  22. BACTRAMIN [Concomitant]
     Active Substance: SULFAMETHOXAZOLE\TRIMETHOPRIM
     Indication: PRODUCT USED FOR UNKNOWN INDICATION
  23. RED CELLS CONCENTRATES-LEUKOCYTES REDUCED [Concomitant]
     Dosage: 400, UNK
     Route: 065
     Dates: start: 20150504, end: 20150504
  24. PLATELETS [Concomitant]
     Active Substance: HUMAN PLATELET, ALLOGENIC
     Dosage: 10 IU, UNK
     Route: 065
     Dates: start: 20150507, end: 20150507
  25. PLATELETS [Concomitant]
     Active Substance: HUMAN PLATELET, ALLOGENIC
     Dosage: 10 IU, UNK
     Route: 065
     Dates: start: 20150511, end: 20150511
  26. PLATELETS [Concomitant]
     Active Substance: HUMAN PLATELET, ALLOGENIC
     Dosage: 10 IU, UNK
     Route: 065
     Dates: start: 20150213, end: 20150213
  27. PLATELETS [Concomitant]
     Active Substance: HUMAN PLATELET, ALLOGENIC
     Dosage: 10 IU, UNK
     Route: 065
     Dates: start: 20150218, end: 20150218
  28. PLATELETS [Concomitant]
     Active Substance: HUMAN PLATELET, ALLOGENIC
     Dosage: 10 IU, UNK
     Route: 065
     Dates: start: 20150309, end: 20150309
  29. RED CELLS CONCENTRATES-LEUKOCYTES REDUCED [Concomitant]
     Dosage: 400, UNK
     Route: 065
     Dates: start: 20150523, end: 20150523
  30. PLATELETS [Concomitant]
     Active Substance: HUMAN PLATELET, ALLOGENIC
     Indication: PRIMARY MYELOFIBROSIS
     Dosage: 10 IU, UNK
     Route: 065
     Dates: start: 20150402, end: 20150402
  31. PLATELETS [Concomitant]
     Active Substance: HUMAN PLATELET, ALLOGENIC
     Dosage: 10 IU, UNK
     Route: 065
     Dates: start: 20150409, end: 20150409
  32. PLATELETS [Concomitant]
     Active Substance: HUMAN PLATELET, ALLOGENIC
     Dosage: 10 IU, UNK
     Route: 065
     Dates: start: 20150415, end: 20150415
  33. PLATELETS [Concomitant]
     Active Substance: HUMAN PLATELET, ALLOGENIC
     Dosage: 10 IU, UNK
     Route: 065
     Dates: start: 20150601, end: 20150601
  34. PLATELETS [Concomitant]
     Active Substance: HUMAN PLATELET, ALLOGENIC
     Dosage: 10 IU, UNK
     Route: 065
     Dates: start: 20150223, end: 20150223
  35. PLATELETS [Concomitant]
     Active Substance: HUMAN PLATELET, ALLOGENIC
     Dosage: 10 IU, UNK
     Route: 065
     Dates: start: 20150316, end: 20150316
  36. PLATELETS [Concomitant]
     Active Substance: HUMAN PLATELET, ALLOGENIC
     Dosage: 10 IU, UNK
     Route: 065
     Dates: start: 20150326, end: 20150326
  37. DIFLUCAN [Concomitant]
     Active Substance: FLUCONAZOLE
     Indication: PRODUCT USED FOR UNKNOWN INDICATION
  38. PLATELET CONCENTRATE(IRRADIATED) [Concomitant]
     Dosage: 10 IU, UNK
     Route: 065
     Dates: start: 20150421, end: 20150421
  39. PLATELETS [Concomitant]
     Active Substance: HUMAN PLATELET, ALLOGENIC
     Dosage: 10 IU, UNK
     Route: 065
     Dates: start: 20150502, end: 20150502
  40. PLATELETS [Concomitant]
     Active Substance: HUMAN PLATELET, ALLOGENIC
     Dosage: 10 IU, UNK
     Route: 065
     Dates: start: 20150608, end: 20150608
  41. JAKAFI [Suspect]
     Active Substance: RUXOLITINIB
     Indication: PRIMARY MYELOFIBROSIS
     Dosage: 25 MG, BID
     Route: 048
     Dates: start: 20150120, end: 20150125
  42. ONCOVIN [Suspect]
     Active Substance: VINCRISTINE SULFATE
     Indication: BLAST CELL COUNT INCREASED
     Dosage: 2 MG, UNK
     Route: 065
     Dates: start: 20150316, end: 20150316
  43. PLATELET CONCENTRATE(IRRADIATED) [Concomitant]
     Indication: ACUTE LYMPHOCYTIC LEUKAEMIA
     Dosage: 10 IU, UNK
     Route: 065
     Dates: start: 20150209, end: 20150607
  44. PLATELET CONCENTRATE(IRRADIATED) [Concomitant]
     Dosage: 10 IU, UNK
     Route: 065
     Dates: start: 20150425, end: 20150425
  45. RED CELLS CONCENTRATES-LEUKOCYTES REDUCED [Concomitant]
     Indication: ACUTE LYMPHOCYTIC LEUKAEMIA
     Dosage: 400 ML, UNK
     Route: 065
     Dates: start: 20150210, end: 20150606
  46. RED CELLS CONCENTRATES-LEUKOCYTES REDUCED [Concomitant]
     Indication: PRIMARY MYELOFIBROSIS
     Dosage: 400 ML, UNK
     Route: 065
     Dates: start: 20150210, end: 20150210
  47. RED CELLS CONCENTRATES-LEUKOCYTES REDUCED [Concomitant]
     Dosage: 400 ML, UNK
     Route: 065
     Dates: start: 20150510, end: 20150510
  48. PLATELETS [Concomitant]
     Active Substance: HUMAN PLATELET, ALLOGENIC
     Indication: ACUTE LYMPHOCYTIC LEUKAEMIA
     Dosage: 10 IU, UNK
     Route: 065
     Dates: start: 20150213, end: 20150608
  49. PLATELETS [Concomitant]
     Active Substance: HUMAN PLATELET, ALLOGENIC
     Dosage: 10 IU, UNK
     Route: 065
     Dates: start: 20150428, end: 20150428
  50. PLATELETS [Concomitant]
     Active Substance: HUMAN PLATELET, ALLOGENIC
     Dosage: 10 IU, UNK
     Route: 065
     Dates: start: 20150529, end: 20150529
  51. PLATELETS [Concomitant]
     Active Substance: HUMAN PLATELET, ALLOGENIC
     Dosage: 10 IU, UNK
     Route: 065
     Dates: start: 20150605, end: 20150605
  52. PLATELETS [Concomitant]
     Active Substance: HUMAN PLATELET, ALLOGENIC
     Dosage: 10 IU, UNK
     Route: 065
     Dates: start: 20150302, end: 20150302
  53. PLATELETS [Concomitant]
     Active Substance: HUMAN PLATELET, ALLOGENIC
     Dosage: 10 IU, UNK
     Route: 065
     Dates: start: 20150320, end: 20150320
  54. RED CELLS CONCENTRATES-LEUKOCYTES REDUCED [Concomitant]
     Dosage: 400, UNK
     Route: 065
     Dates: start: 20150325, end: 20150325

REACTIONS (19)
  - Bronchopulmonary aspergillosis [Recovering/Resolving]
  - Pyrexia [Unknown]
  - Rash generalised [Recovering/Resolving]
  - Respiratory disorder [Fatal]
  - Hepatic function abnormal [Recovered/Resolved]
  - Red blood cell count decreased [Not Recovered/Not Resolved]
  - C-reactive protein increased [Unknown]
  - Sepsis [Not Recovered/Not Resolved]
  - Lymphocyte percentage decreased [Not Recovered/Not Resolved]
  - Blast cell count increased [Not Recovered/Not Resolved]
  - Pyrexia [Recovered/Resolved]
  - Seizure [Not Recovered/Not Resolved]
  - Herpes zoster [Recovering/Resolving]
  - Diarrhoea [Recovered/Resolved]
  - Blood pressure decreased [Unknown]
  - Platelet count decreased [Not Recovered/Not Resolved]
  - White blood cell count decreased [Not Recovered/Not Resolved]
  - Haemoglobin decreased [Not Recovered/Not Resolved]
  - Bone marrow failure [Not Recovered/Not Resolved]

NARRATIVE: CASE EVENT DATE: 20150120
